FAERS Safety Report 5035035-1 (Version None)
Quarter: 2006Q2

REPORT INFORMATION
  Report Type: 
  Country: None (occurrence: None)
  Receive Date: 20060627
  Receipt Date: 20060616
  Transmission Date: 20061013
  Serious: Yes (Other)
  Sender: FDA-Public Use
  Company Number: 2006AP02835

PATIENT
  Age: 62 Year
  Sex: Female

DRUGS (4)
  1. XYLOCAINE VISCOUS [Suspect]
     Indication: ANAESTHESIA
     Route: 048
     Dates: start: 20060615, end: 20060615
  2. XYLOCAINE VISCOUS [Suspect]
     Indication: ENDOSCOPY
     Route: 048
     Dates: start: 20060615, end: 20060615
  3. CONIEL [Suspect]
     Route: 048
  4. LUCUS [Suspect]
     Route: 048

REACTIONS (3)
  - COUGH [None]
  - ERYTHEMA [None]
  - TONGUE DISORDER [None]
